FAERS Safety Report 24403840 (Version 1)
Quarter: 2024Q4

REPORT INFORMATION
  Report Type: Report from Study
  Country: IT (occurrence: IT)
  Receive Date: 20241007
  Receipt Date: 20241007
  Transmission Date: 20250115
  Serious: No
  Sender: ROCHE
  Company Number: IT-ROCHE-3065850

PATIENT
  Age: 43 Year
  Sex: Male

DRUGS (2)
  1. OBINUTUZUMAB [Suspect]
     Active Substance: OBINUTUZUMAB
     Indication: Follicular lymphoma
     Dosage: FREQUENCY IN INDUCTION PERIOD ONCE IN MONTH, IN MAINTENANCE PERIOD EVERY 2 MONTHS, LAST DOSE RECEIVE
     Route: 042
     Dates: start: 20200506
  2. TAPAZOLE [Concomitant]
     Active Substance: METHIMAZOLE
     Route: 048
     Dates: start: 20220320

REACTIONS (6)
  - Anxiety [Recovered/Resolved]
  - Goitre [Not Recovered/Not Resolved]
  - COVID-19 [Recovered/Resolved]
  - Rib fracture [Not Recovered/Not Resolved]
  - Hypothermia [Recovered/Resolved]
  - Haemorrhoids [Recovered/Resolved]

NARRATIVE: CASE EVENT DATE: 20220310
